FAERS Safety Report 9347866 (Version 1)
Quarter: 2013Q2

REPORT INFORMATION
  Report Type: Spontaneous
  Country: JP (occurrence: JP)
  Receive Date: 20130614
  Receipt Date: 20130614
  Transmission Date: 20140414
  Serious: Yes (Other)
  Sender: FDA-Public Use
  Company Number: JP-TEVA-411003ISR

PATIENT
  Sex: 0

DRUGS (1)
  1. PLATOSIN [Suspect]

REACTIONS (1)
  - Renal failure chronic [Unknown]
